FAERS Safety Report 8087038-0 (Version None)
Quarter: 2012Q1

REPORT INFORMATION
  Report Type: 
  Country: None (occurrence: None)
  Receive Date: 20120128
  Receipt Date: 20110418
  Transmission Date: 20120608
  Serious: No
  Sender: FDA-Public Use
  Company Number: US-ABBOTT-11P-163-0720912-00

PATIENT
  Sex: Female
  Weight: 62.198 kg

DRUGS (12)
  1. MELOXICAM [Concomitant]
     Indication: OSTEOARTHRITIS
  2. PANTOPRAZOLE [Concomitant]
     Indication: GASTROOESOPHAGEAL REFLUX DISEASE
  3. CALCIUM [Concomitant]
     Indication: MINERAL SUPPLEMENTATION
  4. HUMIRA [Suspect]
     Indication: RHEUMATOID ARTHRITIS
     Dates: start: 20110101
  5. AVAPRO [Concomitant]
     Indication: HYPERTENSION
  6. FOSAMAX PLUS D [Concomitant]
     Indication: OSTEOARTHRITIS
  7. TEMAZEPAM [Concomitant]
     Indication: INSOMNIA
  8. VYTORIN [Concomitant]
     Indication: BLOOD CHOLESTEROL INCREASED
  9. VITAMIN D [Concomitant]
     Indication: VITAMIN SUPPLEMENTATION
  10. VITAMIN B-12 [Concomitant]
     Indication: VITAMIN SUPPLEMENTATION
  11. CENTRUM MULTIVITAMIN [Concomitant]
     Indication: VITAMIN SUPPLEMENTATION
  12. FISH OIL [Concomitant]
     Indication: VITAMIN SUPPLEMENTATION

REACTIONS (3)
  - DYSPNOEA [None]
  - TINNITUS [None]
  - SINUSITIS [None]
